FAERS Safety Report 7125051-8 (Version None)
Quarter: 2010Q4

REPORT INFORMATION
  Report Type: 
  Country: None (occurrence: None)
  Receive Date: 20101129
  Receipt Date: 20101115
  Transmission Date: 20110411
  Serious: No
  Sender: FDA-Public Use
  Company Number: US-JNJFOC-20101105737

PATIENT
  Sex: Female
  Weight: 72.58 kg

DRUGS (9)
  1. FENTANYL-100 [Suspect]
     Indication: INTERVERTEBRAL DISC PROTRUSION
     Route: 062
  2. FENTANYL-100 [Suspect]
     Indication: SPINAL FUSION SURGERY
     Route: 062
  3. TERAZOSIN HCL [Concomitant]
     Indication: HOT FLUSH
     Route: 048
  4. OMEPRAZOLE [Concomitant]
     Indication: GASTRIC DISORDER
     Route: 048
  5. BETHANECHOL [Concomitant]
     Indication: URINARY TRACT DISORDER
     Route: 048
  6. SEROQUEL [Concomitant]
     Indication: SLEEP DISORDER
     Route: 048
  7. VENLAFAXINE [Concomitant]
     Indication: DEPRESSION
     Route: 048
  8. HYDROCODONE [Concomitant]
     Indication: BREAKTHROUGH PAIN
     Dosage: 10 MG/500 MG
     Route: 048
  9. GABAPENTIN [Concomitant]
     Indication: PAIN
     Route: 048

REACTIONS (1)
  - DRUG ADMINISTERED AT INAPPROPRIATE SITE [None]
